FAERS Safety Report 9065965 (Version 1)
Quarter: 2013Q1

REPORT INFORMATION
  Report Type: Report from Study
  Country: US (occurrence: US)
  Receive Date: 20130131
  Receipt Date: 20130131
  Transmission Date: 20140127
  Serious: No
  Sender: FDA-Public Use
  Company Number: US-ABBOTT-12P-163-1017213-00

PATIENT
  Age: 54 Year
  Sex: Female

DRUGS (5)
  1. HUMIRA [Suspect]
     Indication: CROHN^S DISEASE
     Dosage: 160MG THEN 80MG
     Route: 058
     Dates: start: 201211
  2. CARBIDOPA AND LEVODOPA [Concomitant]
     Indication: RESTLESS LEGS SYNDROME
     Dosage: 25/250 BOTH AT SAME TIME ONCE A DAY
  3. MARIPEX [Concomitant]
     Indication: RESTLESS LEGS SYNDROME
     Dosage: 0.5MG DAILY
  4. PREDNISONE [Concomitant]
     Indication: CROHN^S DISEASE
     Dosage: 10MG DAILY ON DECREASING DOSE
  5. HERBS [Concomitant]
     Indication: PRODUCT USED FOR UNKNOWN INDICATION

REACTIONS (4)
  - Dysphagia [Not Recovered/Not Resolved]
  - Neck pain [Not Recovered/Not Resolved]
  - Facial pain [Not Recovered/Not Resolved]
  - Eye pain [Not Recovered/Not Resolved]
